FAERS Safety Report 17412457 (Version 1)
Quarter: 2020Q1

REPORT INFORMATION
  Report Type: Report from Study
  Country: IT (occurrence: IT)
  Receive Date: 20200213
  Receipt Date: 20200213
  Transmission Date: 20200409
  Serious: Yes (Other)
  Sender: FDA-Public Use
  Company Number: IT-AUROBINDO-AUR-APL-2020-006989

PATIENT

DRUGS (9)
  1. CYTARABINE. [Suspect]
     Active Substance: CYTARABINE
     Indication: DIFFUSE LARGE B-CELL LYMPHOMA REFRACTORY
  2. OXALIPLATIN. [Suspect]
     Active Substance: OXALIPLATIN
     Indication: SALVAGE THERAPY
     Dosage: 130 MILLIGRAM/SQ. METER ON DAY 1
     Route: 065
  3. DEXAMETHASONE. [Suspect]
     Active Substance: DEXAMETHASONE
     Indication: DIFFUSE LARGE B-CELL LYMPHOMA REFRACTORY
  4. RITUXIMAB. [Suspect]
     Active Substance: RITUXIMAB
     Indication: SALVAGE THERAPY
     Dosage: 375 MILLIGRAM/SQ. METER ON DAY 2
     Route: 065
  5. CYTARABINE. [Suspect]
     Active Substance: CYTARABINE
     Indication: SALVAGE THERAPY
     Dosage: 2 GRAM PER SQUARE METRE ON DAY 2
     Route: 065
  6. OXALIPLATIN. [Suspect]
     Active Substance: OXALIPLATIN
     Indication: DIFFUSE LARGE B-CELL LYMPHOMA REFRACTORY
  7. RITUXIMAB. [Suspect]
     Active Substance: RITUXIMAB
     Indication: DIFFUSE LARGE B-CELL LYMPHOMA REFRACTORY
  8. DEXAMETHASONE. [Suspect]
     Active Substance: DEXAMETHASONE
     Indication: SALVAGE THERAPY
     Dosage: 40 MILLIGRAM, DAILY ON DAYS 14
     Route: 065
  9. GRANULOCYTE COLONY STIMULATING FACTOR [Concomitant]
     Active Substance: GRANULOCYTE COLONY-STIMULATING FACTOR NOS
     Indication: PROPHYLAXIS
     Dosage: 5 MICROGRAM/KILOGRAM/DAY
     Route: 065

REACTIONS (1)
  - Atrial fibrillation [Unknown]
